FAERS Safety Report 5241026-8 (Version None)
Quarter: 2007Q1

REPORT INFORMATION
  Report Type: 
  Country: None (occurrence: None)
  Receive Date: 20070219
  Receipt Date: 20070206
  Transmission Date: 20070707
  Serious: Yes (Hospitalization)
  Sender: FDA-Public Use
  Company Number: NL-PFIZER INC-2006130464

PATIENT
  Sex: Female
  Weight: 55 kg

DRUGS (3)
  1. SU-011,248 [Suspect]
     Indication: METASTATIC RENAL CELL CARCINOMA
     Route: 048
  2. METOPROLOL SUCCINATE [Concomitant]
     Route: 048
     Dates: start: 20020101
  3. AMLODIPINE [Concomitant]
     Route: 048
     Dates: start: 20060901

REACTIONS (1)
  - RENAL IMPAIRMENT [None]
